FAERS Safety Report 7703052-6 (Version None)
Quarter: 2011Q3

REPORT INFORMATION
  Report Type: 
  Country: None (occurrence: None)
  Receive Date: 20110817
  Receipt Date: 20110808
  Transmission Date: 20111222
  Serious: Yes (Other)
  Sender: FDA-Public Use
  Company Number: JHP201100389

PATIENT
  Age: 42 Year
  Sex: Female

DRUGS (5)
  1. DULOXETINE HYDROCHLORIDE [Suspect]
     Dosage: SEE IMAGE
  2. MIRTAZAPINE [Concomitant]
  3. QUETIAPINE FUMARATE [Concomitant]
  4. OPIOIDS [Concomitant]
  5. KETALAR [Suspect]
     Indication: COMPLEX REGIONAL PAIN SYNDROME
     Dosage: 10 TO 20 MG/HR OVER A PERIOD OF 5 DAYS, INTRAVENOUS
     Route: 042

REACTIONS (16)
  - TANGENTIALITY [None]
  - REFUSAL OF TREATMENT BY PATIENT [None]
  - LOOSE ASSOCIATIONS [None]
  - AFFECT LABILITY [None]
  - SUICIDAL IDEATION [None]
  - MANIA [None]
  - IRRITABILITY [None]
  - DRUG INTERACTION [None]
  - DRUG ABUSE [None]
  - PRESSURE OF SPEECH [None]
  - AGITATION [None]
  - ABNORMAL BEHAVIOUR [None]
  - SEDATION [None]
  - MENTAL STATUS CHANGES [None]
  - PARANOIA [None]
  - HYPOMANIA [None]
